FAERS Safety Report 5330075-7 (Version None)
Quarter: 2007Q2

REPORT INFORMATION
  Report Type: 
  Country: None (occurrence: None)
  Receive Date: 20070521
  Receipt Date: 20070508
  Transmission Date: 20071010
  Serious: Yes (Other)
  Sender: FDA-Public Use
  Company Number: BR-ROCHE-459529

PATIENT
  Sex: Male
  Weight: 2.8 kg

DRUGS (8)
  1. ISOTRETINOIN [Suspect]
     Indication: ACNE
     Dosage: THE DOSE WAS GRADUALLY DECREASED FROM 40 MG DAILY TO 20 MG DAILY TO 20 MG EACH OTHER DAY.
     Dates: start: 20060201, end: 20060217
  2. ISOTRETINOIN [Suspect]
     Dates: start: 20051201, end: 20060201
  3. ISOTRETINOIN [Suspect]
     Dates: start: 20050614, end: 20051101
  4. XENICAL [Suspect]
     Indication: CONSTIPATION
     Dates: start: 20060801, end: 20060801
  5. XENICAL [Suspect]
     Dates: start: 20060701, end: 20060701
  6. UNSPECIFIED DRUG [Concomitant]
     Indication: CONTRACEPTION
  7. ANTIBIOTIC NOS [Concomitant]
     Indication: ACNE
     Dosage: TAKEN FOR TWO OR THREE TIMES DURING THE ISOTRETINOIN THERAPY.
     Dates: start: 20050614, end: 20060201
  8. CORTICOSTEROID NOS [Concomitant]
     Indication: ACNE
     Dosage: REPORTED AS CORTICOID. TAKEN FOR TWO OR THREE TIMES DURING THE ISOTRETINOIN THERAPY.
     Dates: start: 20050614, end: 20060201

REACTIONS (2)
  - NO ADVERSE EFFECT [None]
  - NORMAL NEWBORN [None]
